FAERS Safety Report 5228537-6 (Version None)
Quarter: 2007Q1

REPORT INFORMATION
  Report Type: 
  Country: None (occurrence: None)
  Receive Date: 20070205
  Receipt Date: 20070124
  Transmission Date: 20070707
  Serious: Yes (Other)
  Sender: FDA-Public Use
  Company Number: JP-AVENTIS-200710712GDDC

PATIENT
  Age: 54 Year
  Sex: Male

DRUGS (3)
  1. ISCOTIN                            /00030201/ [Suspect]
     Indication: TUBERCULOSIS
     Dosage: DOSE: UNK
  2. RIFADIN [Suspect]
     Indication: TUBERCULOSIS
     Dosage: DOSE: UNK
     Route: 048
  3. ETHAMBUTOL HYDROCHLORIDE [Suspect]
     Indication: TUBERCULOSIS
     Dosage: DOSE: UNK
     Route: 048

REACTIONS (1)
  - CHOLANGITIS [None]
